FAERS Safety Report 10484085 (Version 1)
Quarter: 2014Q3

REPORT INFORMATION
  Report Type: Spontaneous
  Country: US (occurrence: None)
  Receive Date: 20140926
  Receipt Date: 20140926
  Transmission Date: 20150326
  Serious: Yes (Other)
  Sender: FDA-Public Use
  Company Number: 153719

PATIENT
  Age: 64 Year

DRUGS (3)
  1. ADRIAMYCIN [Suspect]
     Active Substance: DOXORUBICIN HYDROCHLORIDE
     Indication: PLASMA CELL MYELOMA
     Dosage: EVERY 21 DAYS
     Route: 042
     Dates: start: 20110214, end: 20111014
  2. DECADRON [Concomitant]
     Active Substance: DEXAMETHASONE
  3. VELCAID [Concomitant]

REACTIONS (2)
  - Duodenitis [None]
  - Oesophagitis [None]

NARRATIVE: CASE EVENT DATE: 20110715
